FAERS Safety Report 7148661-0 (Version None)
Quarter: 2010Q4

REPORT INFORMATION
  Report Type: 
  Country: None (occurrence: None)
  Receive Date: 20101209
  Receipt Date: 20101201
  Transmission Date: 20110411
  Serious: Yes (Hospitalization, Other)
  Sender: FDA-Public Use
  Company Number: US-NAPPMUNDI-USA-2010-0048501

PATIENT
  Sex: Female
  Weight: 50.794 kg

DRUGS (4)
  1. OXYCONTIN [Suspect]
     Indication: PRODUCT USED FOR UNKNOWN INDICATION
     Dosage: 320 MG, DAILY
     Dates: start: 20100901, end: 20101001
  2. CELEBREX [Concomitant]
     Indication: PRODUCT USED FOR UNKNOWN INDICATION
  3. OXYCONTIN [Concomitant]
     Indication: BREAKTHROUGH PAIN
     Dosage: 60 MG, UNK
  4. PERCOCET [Concomitant]
     Indication: BREAKTHROUGH PAIN

REACTIONS (6)
  - ANAPHYLACTIC SHOCK [None]
  - ARTHROPATHY [None]
  - DRUG INEFFECTIVE [None]
  - RASH [None]
  - SWOLLEN TONGUE [None]
  - URTICARIA [None]
